FAERS Safety Report 18682480 (Version 2)
Quarter: 2021Q1

REPORT INFORMATION
  Report Type: Spontaneous
  Country: BY (occurrence: BY)
  Receive Date: 20201230
  Receipt Date: 20210113
  Transmission Date: 20210419
  Serious: Yes (Other)
  Sender: FDA-Public Use
  Company Number: BY-LUPIN PHARMACEUTICALS INC.-2020-08069

PATIENT
  Age: 1 Year
  Sex: Female

DRUGS (5)
  1. LAMOTRIGINE. [Suspect]
     Active Substance: LAMOTRIGINE
     Indication: SEIZURE
     Dosage: UNK
     Route: 048
  2. FLUNARIZINE [Concomitant]
     Active Substance: FLUNARIZINE
     Indication: ALTERNATING HEMIPLEGIA OF CHILDHOOD
     Dosage: 5 MILLIGRAM, QD (DIVIDED INTO 2 DOSES)
     Route: 065
  3. ADENOSINE TRIPHOSPHATE [Concomitant]
     Active Substance: ADENOSINE TRIPHOSPHATE
     Dosage: 20 MILLIGRAM/KILOGRAM, QD (STOPPED)
     Route: 048
  4. SODIUM VALPROATE [Suspect]
     Active Substance: VALPROATE SODIUM
     Indication: SEIZURE
     Dosage: UNK
     Route: 048
  5. ADENOSINE TRIPHOSPHATE [Concomitant]
     Active Substance: ADENOSINE TRIPHOSPHATE
     Indication: ALTERNATING HEMIPLEGIA OF CHILDHOOD
     Dosage: 2 MILLIGRAM/KILOGRAM, QD
     Route: 048

REACTIONS (1)
  - Drug ineffective [Unknown]
